FAERS Safety Report 10960190 (Version 2)
Quarter: 2015Q3

REPORT INFORMATION
  Report Type: Spontaneous
  Country: US (occurrence: US)
  Receive Date: 20150327
  Receipt Date: 20150724
  Transmission Date: 20151125
  Serious: Yes (Hospitalization)
  Sender: FDA-Public Use
  Company Number: US-BAYER-2015-066256

PATIENT
  Age: 27 Year
  Sex: Female
  Weight: 68.27 kg

DRUGS (2)
  1. MIRENA [Suspect]
     Active Substance: LEVONORGESTREL
     Indication: CONTRACEPTION
     Dosage: 20 MCG/24HR, CONT
     Route: 015
     Dates: start: 20061221, end: 20070112
  2. METAMIZOLE [METAMIZOLE] [Concomitant]
     Indication: HYPERTHYROIDISM

REACTIONS (7)
  - Device dislocation [None]
  - Pelvic pain [None]
  - Pain [None]
  - Device issue [None]
  - Injury [None]
  - Vaginal haemorrhage [None]
  - Menorrhagia [None]

NARRATIVE: CASE EVENT DATE: 2006
